FAERS Safety Report 14250218 (Version 1)
Quarter: 2017Q4

REPORT INFORMATION
  Report Type: Spontaneous
  Country: BR (occurrence: BR)
  Receive Date: 20171205
  Receipt Date: 20171205
  Transmission Date: 20180321
  Serious: Yes (Hospitalization, Other)
  Sender: FDA-Public Use
  Company Number: BR-SUN PHARMACEUTICAL INDUSTRIES LTD-2017R1-156073

PATIENT
  Age: 62 Year
  Sex: Female

DRUGS (2)
  1. DOXORUBICIN [Suspect]
     Active Substance: DOXORUBICIN
     Indication: METASTASES TO LIVER
     Dosage: TRANSARTERIAL CHEMOEMBOLIZATION WITH IODIZED OIL MIXED WITH 50 MG DOXORUBICIN
     Route: 065
  2. IODIZED OIL [Suspect]
     Active Substance: IODIZED OIL
     Indication: METASTASES TO LIVER
     Dosage: TRANSARTERIAL CHEMOEMBOLIZATION WITH IODIZED OIL MIXED WITH 50 MG DOXORUBICIN
     Route: 065

REACTIONS (1)
  - Omental infarction [Recovering/Resolving]
